FAERS Safety Report 23799002 (Version 1)
Quarter: 2024Q2

REPORT INFORMATION
  Report Type: Spontaneous
  Country: US (occurrence: None)
  Receive Date: 20240427
  Receipt Date: 20240427
  Transmission Date: 20240716
  Serious: Yes (Hospitalization)
  Sender: FDA-Public Use
  Company Number: None

PATIENT
  Age: 83 Year
  Sex: Male
  Weight: 85.2 kg

DRUGS (1)
  1. MORPHINE [Suspect]
     Active Substance: MORPHINE
     Indication: Pain
     Dosage: 2 MG ONCE IV
     Route: 042
     Dates: start: 20230401, end: 20230401

REACTIONS (2)
  - Syncope [None]
  - Sinus arrest [None]

NARRATIVE: CASE EVENT DATE: 20230401
